FAERS Safety Report 14981441 (Version 4)
Quarter: 2018Q3

REPORT INFORMATION
  Report Type: Spontaneous
  Country: JP (occurrence: JP)
  Receive Date: 20180606
  Receipt Date: 20180710
  Transmission Date: 20181010
  Serious: Yes (Hospitalization, Other)
  Sender: FDA-Public Use
  Company Number: JP-AMGEN-JPNSP2018074819

PATIENT
  Age: 79 Year
  Sex: Female

DRUGS (8)
  1. NESP [Suspect]
     Active Substance: DARBEPOETIN ALFA
     Dosage: 120 MUG, QMO
     Route: 065
     Dates: start: 201512, end: 201712
  2. FUROSEMIDE. [Concomitant]
     Active Substance: FUROSEMIDE
     Dosage: 40 MG, QD AFTER BREAKFAST
     Route: 048
  3. BISOPROLOL [Concomitant]
     Active Substance: BISOPROLOL
     Dosage: 2 DF, QD AFTER BREAKFAST
     Route: 048
  4. DOPS [Concomitant]
     Active Substance: DROXIDOPA
     Dosage: 200 MG, QD AT THE DAY OF DIALYSIS TREATMENT
     Route: 048
  5. BAYASPIRIN [Concomitant]
     Active Substance: ASPIRIN
     Dosage: 100 MG, QD AFTER BREAKFAST
     Route: 048
  6. NESP [Suspect]
     Active Substance: DARBEPOETIN ALFA
     Dosage: 120 MUG, QWK
     Route: 065
  7. NESP [Suspect]
     Active Substance: DARBEPOETIN ALFA
     Indication: PRODUCT USED FOR UNKNOWN INDICATION
     Dosage: 60 MUG, QMO
     Route: 065
     Dates: start: 201501, end: 201511
  8. ZOLPIDEM TARTRATE. [Concomitant]
     Active Substance: ZOLPIDEM TARTRATE
     Dosage: 5 MG, QD BEFORE BEDTIME
     Route: 048

REACTIONS (1)
  - Aplasia pure red cell [Unknown]
